FAERS Safety Report 23332936 (Version 1)
Quarter: 2023Q4

REPORT INFORMATION
  Report Type: Report from Study
  Country: DE (occurrence: DE)
  Receive Date: 20231222
  Receipt Date: 20231222
  Transmission Date: 20240110
  Serious: Yes (Hospitalization)
  Sender: FDA-Public Use
  Company Number: DE-SUN PHARMACEUTICAL INDUSTRIES LTD-2023RR-395162

PATIENT
  Age: 53 Year
  Sex: Female
  Weight: 105 kg

DRUGS (16)
  1. TILDRAKIZUMAB [Suspect]
     Active Substance: TILDRAKIZUMAB
     Indication: Psoriatic arthropathy
     Dosage: 100 MILLIGRAM
     Route: 058
     Dates: start: 20200211
  2. Levothyroxine Abdi 150 ?g [Concomitant]
     Indication: Product used for unknown indication
     Dosage: 150 MICROGRAM 1-0-0-0 (1 IN 1 D)
  3. Levothyroxine Abdi 150 ?g [Concomitant]
     Dosage: 0.5-0-0-0 (1 IN 1 D)
     Route: 065
  4. Losartan comp. AbZ 100 mg/25 mg [Concomitant]
     Indication: Product used for unknown indication
     Dosage: 1-0-0-0 (1 IN 1 D)
     Route: 065
  5. Metamizol AbZ 500 mg [Concomitant]
     Indication: Product used for unknown indication
     Dosage: PLEASE ADJUST (2-2-2-2)
     Route: 065
  6. OMEP MUT 40 mg [Concomitant]
     Indication: Product used for unknown indication
     Dosage: 40 MICROGRAM, (1-0-0-0) (1 IN 1 D)
     Route: 065
  7. VeraHEXAL 120 mg [Concomitant]
     Indication: Product used for unknown indication
     Dosage: 120 MILLIGRAM
     Route: 065
  8. VERAPAMIL [Concomitant]
     Active Substance: VERAPAMIL HYDROCHLORIDE
     Indication: Product used for unknown indication
     Dosage: 120 MILLIGRAM
     Route: 048
  9. MOMETASONE FUROATE [Concomitant]
     Active Substance: MOMETASONE FUROATE
     Indication: Psoriasis
     Dosage: 120 MILLIGRAM
     Route: 048
     Dates: start: 20191024
  10. LOSARTAN [Concomitant]
     Active Substance: LOSARTAN
     Indication: Product used for unknown indication
     Dosage: 100MG/25 MG
     Route: 048
  11. LEVOTHYROXINE SODIUM [Concomitant]
     Active Substance: LEVOTHYROXINE SODIUM
     Indication: Product used for unknown indication
     Dosage: 162.5 MCG
     Route: 048
  12. METAMIZOLE [Concomitant]
     Active Substance: METAMIZOLE
     Indication: Product used for unknown indication
     Dosage: 500 MG
  13. ANORO 55/22 [Concomitant]
     Indication: Product used for unknown indication
     Dosage: UNK
     Route: 065
  14. FENOTEROL HYDROBROMIDE [Concomitant]
     Active Substance: FENOTEROL HYDROBROMIDE
     Indication: Product used for unknown indication
     Route: 065
  15. LEVOTHYROXINE SODIUM [Concomitant]
     Active Substance: LEVOTHYROXINE SODIUM
     Indication: Product used for unknown indication
     Dosage: UNK
     Route: 065
  16. LEVOTHYROXINE SODIUM [Concomitant]
     Active Substance: LEVOTHYROXINE SODIUM
     Indication: Product used for unknown indication
     Route: 065

REACTIONS (2)
  - Sciatica [Unknown]
  - Intervertebral disc protrusion [Not Recovered/Not Resolved]

NARRATIVE: CASE EVENT DATE: 20221120
